FAERS Safety Report 24913833 (Version 2)
Quarter: 2025Q1

REPORT INFORMATION
  Report Type: Report from Study
  Country: LB (occurrence: LB)
  Receive Date: 20250202
  Receipt Date: 20250223
  Transmission Date: 20250409
  Serious: Yes (Other)
  Sender: ROCHE
  Company Number: LB-ROCHE-10000196775

PATIENT
  Sex: Female
  Weight: 55 kg

DRUGS (1)
  1. TECENTRIQ [Suspect]
     Active Substance: ATEZOLIZUMAB
     Indication: Small cell lung cancer extensive stage
     Route: 042
     Dates: start: 202410, end: 20250109

REACTIONS (2)
  - Breast mass [Recovered/Resolved]
  - Metastases to central nervous system [Not Recovered/Not Resolved]
